FAERS Safety Report 8881933 (Version 1)
Quarter: 2012Q4

REPORT INFORMATION
  Report Type: 
  Country: US (occurrence: US)
  Receive Date: 20121102
  Receipt Date: 20121102
  Transmission Date: 20130627
  Serious: Yes (Other)
  Sender: FDA-Public Use
  Company Number: US-JNJFOC-20121014069

PATIENT
  Sex: Female
  Weight: 59.88 kg

DRUGS (2)
  1. DURAGESIC [Suspect]
     Indication: ARTHRITIS
     Route: 062
     Dates: start: 2007
  2. DURAGESIC [Suspect]
     Indication: ARTHRITIS
     Route: 062

REACTIONS (4)
  - Cataract [Recovering/Resolving]
  - Headache [Recovering/Resolving]
  - Pain [Recovering/Resolving]
  - Product quality issue [Unknown]
